FAERS Safety Report 9746783 (Version 1)
Quarter: 2013Q4

REPORT INFORMATION
  Report Type: Spontaneous
  Country: GB (occurrence: GB)
  Receive Date: 20131211
  Receipt Date: 20131211
  Transmission Date: 20140711
  Serious: Yes (Hospitalization)
  Sender: FDA-Public Use
  Company Number: PHHY2013GB143632

PATIENT
  Age: 76 Year
  Sex: Female
  Weight: 63.4 kg

DRUGS (4)
  1. METHOTREXATE [Suspect]
     Indication: RHEUMATOID ARTHRITIS
     Route: 048
     Dates: start: 20130916
  2. ACETYLSALICYLIC ACID [Suspect]
     Dosage: 75 MG, QD
     Route: 048
     Dates: start: 20100102
  3. LISINOPRIL [Suspect]
     Dosage: MORNING
     Route: 048
     Dates: start: 20100101
  4. FUROSEMIDE [Suspect]
     Dosage: 40 MG, QD MORNING
     Route: 048
     Dates: start: 20100101

REACTIONS (3)
  - Diarrhoea [Recovering/Resolving]
  - Vomiting [Recovering/Resolving]
  - Platelet count decreased [Recovering/Resolving]
